FAERS Safety Report 11565219 (Version 1)
Quarter: 2015Q3

REPORT INFORMATION
  Report Type: Spontaneous
  Country: US (occurrence: US)
  Receive Date: 20150916
  Receipt Date: 20150916
  Transmission Date: 20151125
  Serious: No
  Sender: FDA-Public Use
  Company Number: US-ELI_LILLY_AND_COMPANY-US200904003799

PATIENT
  Sex: Female

DRUGS (3)
  1. FORTEO [Suspect]
     Active Substance: TERIPARATIDE
     Dates: start: 20090416
  2. FORTEO [Suspect]
     Active Substance: TERIPARATIDE
     Indication: HYPOPARATHYROIDISM
     Dosage: UNK, 2/D
     Dates: start: 2004, end: 200712
  3. FORTEO [Suspect]
     Active Substance: TERIPARATIDE

REACTIONS (2)
  - Off label use [Not Recovered/Not Resolved]
  - Prescribed overdose [Unknown]

NARRATIVE: CASE EVENT DATE: 2004
